FAERS Safety Report 11908211 (Version 1)
Quarter: 2016Q1

REPORT INFORMATION
  Report Type: Spontaneous
  Country: EE (occurrence: EE)
  Receive Date: 20160111
  Receipt Date: 20160111
  Transmission Date: 20160526
  Serious: Yes (Life-Threatening, Hospitalization)
  Sender: FDA-Public Use
  Company Number: EE-FERRINGPH-2015FE01577

PATIENT

DRUGS (3)
  1. KETOPROFEN. [Concomitant]
     Active Substance: KETOPROFEN
     Indication: PRODUCT USED FOR UNKNOWN INDICATION
     Dosage: UNK
     Route: 048
     Dates: start: 20150427
  2. OCTOSTIM [Suspect]
     Active Substance: DESMOPRESSIN ACETATE
     Indication: PLATELET AGGREGATION INHIBITION
     Dosage: 30 ?G, ONCE/SINGLE
     Route: 042
     Dates: start: 20150428, end: 20150428
  3. NORVASC [Concomitant]
     Active Substance: AMLODIPINE BESYLATE
     Indication: HYPERTENSION
     Dosage: 10 MG, 1 TIME DAILY
     Route: 048

REACTIONS (2)
  - Intentional overdose [Recovered/Resolved]
  - Acute myocardial infarction [Recovered/Resolved]

NARRATIVE: CASE EVENT DATE: 20150428
